FAERS Safety Report 8155827-X (Version None)
Quarter: 2012Q1

REPORT INFORMATION
  Report Type: 
  Country: None (occurrence: None)
  Receive Date: 20120215
  Receipt Date: 20120201
  Transmission Date: 20120608
  Serious: Yes (Hospitalization)
  Sender: FDA-Public Use
  Company Number: 2012AP000115

PATIENT
  Age: 83 Year
  Sex: Male

DRUGS (9)
  1. FUROSEMIDE [Concomitant]
  2. ISOSORBIDE MONONITRATE [Concomitant]
  3. CAPTOPRIL [Suspect]
     Indication: CARDIAC DISORDER
     Dosage: 25 MG, PO, BID
     Route: 048
  4. CLARITHROMYCIN [Suspect]
     Indication: PNEUMONIA
     Dosage: 500 MG, BID, PO
     Route: 048
  5. SPIRONOLACTONE [Suspect]
     Indication: CARDIAC DISORDER
     Dosage: 25 MG, PO, QD
     Route: 048
  6. BISOPROLOL FUMARATE [Concomitant]
  7. PRAVASTATIN [Concomitant]
  8. DIGOXIN [Suspect]
     Indication: CARDIAC DISORDER
     Dosage: 0.125 MG, PO, QD
     Route: 048
  9. POTASSIUM CHLORIDE [Suspect]
     Dosage: 20 MMOL, QD

REACTIONS (7)
  - VENTRICULAR EXTRASYSTOLES [None]
  - TOXICITY TO VARIOUS AGENTS [None]
  - WHITE BLOOD CELL COUNT INCREASED [None]
  - DRUG INTERACTION [None]
  - RENAL IMPAIRMENT [None]
  - MALAISE [None]
  - COUGH [None]
